FAERS Safety Report 16105073 (Version 1)
Quarter: 2019Q1

REPORT INFORMATION
  Report Type: Spontaneous
  Country: US (occurrence: US)
  Receive Date: 20190219
  Receipt Date: 20190219
  Transmission Date: 20190418
  Serious: No
  Sender: FDA-Public Use
  Company Number: None

PATIENT
  Age: 73 Year
  Sex: Female
  Weight: 69.6 kg

DRUGS (2)
  1. ETOPOSIDE (VP-16) [Suspect]
     Active Substance: ETOPOSIDE
     Dates: end: 20190125
  2. CISPLATIN. [Suspect]
     Active Substance: CISPLATIN
     Dates: end: 20190123

REACTIONS (15)
  - Nausea [None]
  - Hypomagnesaemia [None]
  - Hyperglycaemia [None]
  - Neutrophil count decreased [None]
  - Flank pain [None]
  - Hypoalbuminaemia [None]
  - Thrombophlebitis superficial [None]
  - White blood cell count decreased [None]
  - Alopecia [None]
  - Respiratory failure [None]
  - Fatigue [None]
  - Platelet count decreased [None]
  - Vomiting [None]
  - Constipation [None]
  - Enterocolitis [None]

NARRATIVE: CASE EVENT DATE: 20190205
